FAERS Safety Report 4512473-4 (Version None)
Quarter: 2004Q4

REPORT INFORMATION
  Report Type: 
  Country: None (occurrence: None)
  Receive Date: 20041124
  Receipt Date: 20041110
  Transmission Date: 20050328
  Serious: Yes (Other)
  Sender: FDA-Public Use
  Company Number: US_0411108032

PATIENT
  Age: 74 Year
  Sex: Male

DRUGS (1)
  1. FORTEO [Suspect]
     Dates: start: 20031101

REACTIONS (4)
  - ASEPTIC NECROSIS BONE [None]
  - CONTUSION [None]
  - JOINT HYPEREXTENSION [None]
  - SPORTS INJURY [None]
